FAERS Safety Report 9482550 (Version 1)
Quarter: 2013Q3

REPORT INFORMATION
  Report Type: Spontaneous
  Country: US (occurrence: US)
  Receive Date: 20130828
  Receipt Date: 20130828
  Transmission Date: 20140515
  Serious: No
  Sender: FDA-Public Use
  Company Number: US-SANOFI-AVENTIS-2013SA049005

PATIENT
  Age: 59 Year
  Sex: Male
  Weight: 83 kg

DRUGS (3)
  1. ELIGARD [Suspect]
     Indication: PROSTATE CANCER
     Route: 065
     Dates: start: 20130109
  2. CASODEX [Concomitant]
     Route: 048
  3. AXERT [Concomitant]
     Route: 048

REACTIONS (2)
  - Blood testosterone increased [Not Recovered/Not Resolved]
  - Drug ineffective [Unknown]
